FAERS Safety Report 23455028 (Version 1)
Quarter: 2024Q1

REPORT INFORMATION
  Report Type: Spontaneous
  Country: FR (occurrence: FR)
  Receive Date: 20240130
  Receipt Date: 20240130
  Transmission Date: 20240409
  Serious: Yes (Other)
  Sender: FDA-Public Use
  Company Number: FR-AFSSAPS-AVNY2023000605

PATIENT
  Age: 48 Year
  Sex: Male
  Weight: 68 kg

DRUGS (5)
  1. TRAMADOL [Suspect]
     Active Substance: TRAMADOL\TRAMADOL HYDROCHLORIDE
     Indication: Ligament sprain
     Dosage: 800 MILLIGRAM,
     Route: 048
     Dates: start: 20231124, end: 20231124
  2. TRAMADOL [Suspect]
     Active Substance: TRAMADOL\TRAMADOL HYDROCHLORIDE
     Dosage: 1200 MILLIGRAM,
     Route: 048
     Dates: start: 20231125, end: 20231125
  3. TRAMADOL [Suspect]
     Active Substance: TRAMADOL\TRAMADOL HYDROCHLORIDE
     Dosage: 1200 MILLIGRAM,
     Route: 048
     Dates: start: 20231126, end: 20231126
  4. TRAMADOL [Suspect]
     Active Substance: TRAMADOL\TRAMADOL HYDROCHLORIDE
     Dosage: 1200 MILLIGRAM,
     Route: 048
     Dates: start: 20231127, end: 20231127
  5. TRAMADOL [Suspect]
     Active Substance: TRAMADOL\TRAMADOL HYDROCHLORIDE
     Dosage: 200 MILLIGRAM,
     Route: 048
     Dates: start: 20231128, end: 20231128

REACTIONS (4)
  - Drug use disorder [Recovering/Resolving]
  - Asthenia [Recovering/Resolving]
  - Vomiting [Recovered/Resolved]
  - Decreased appetite [Recovered/Resolved]

NARRATIVE: CASE EVENT DATE: 20231124
